FAERS Safety Report 9891342 (Version 1)
Quarter: 2014Q1

REPORT INFORMATION
  Report Type: Spontaneous
  Country: US (occurrence: None)
  Receive Date: 20140210
  Receipt Date: 20140210
  Transmission Date: 20141002
  Serious: Yes (Death)
  Sender: FDA-Public Use
  Company Number: UTC-044147

PATIENT
  Age: 57 Year
  Sex: Male
  Weight: 100.9 kg

DRUGS (2)
  1. REMODULIN ( 2.5 MILLIGRAM/MILLILITERS, INJECTION FOR INFUSION) ( TREPROSTINIL SODIUM) [Suspect]
     Indication: COR PULMONALE CHRONIC
     Dosage: 72 UG/KG ( 0.05 UG/KG, 1 IN 1 MIN) INTRAVENOUS DRIP
     Route: 041
     Dates: start: 20120530
  2. SILDENAFIL [Concomitant]

REACTIONS (1)
  - Death [None]
